FAERS Safety Report 8416459-9 (Version None)
Quarter: 2012Q2

REPORT INFORMATION
  Report Type: 
  Country: None (occurrence: None)
  Receive Date: 20120606
  Receipt Date: 20120529
  Transmission Date: 20120825
  Serious: Yes (Hospitalization)
  Sender: FDA-Public Use
  Company Number: US-ASTRAZENECA-2012SE29566

PATIENT
  Age: 73 Year
  Sex: Male
  Weight: 108.4 kg

DRUGS (8)
  1. BRILINTA [Suspect]
     Indication: ANTICOAGULANT THERAPY
     Route: 048
     Dates: start: 20120501, end: 20120502
  2. LIPITOR [Concomitant]
  3. SYNTHROID [Concomitant]
  4. TOPROL-XL [Concomitant]
     Route: 048
  5. DETROL LA [Concomitant]
     Route: 048
  6. ASPIRIN [Concomitant]
     Route: 065
  7. ZESTRIL [Concomitant]
     Route: 048
  8. ZOLOFT [Concomitant]
     Route: 048

REACTIONS (5)
  - CEREBROVASCULAR ACCIDENT [None]
  - GAIT DISTURBANCE [None]
  - CEREBRAL INFARCTION [None]
  - BALANCE DISORDER [None]
  - DIZZINESS [None]
